FAERS Safety Report 25455368 (Version 1)
Quarter: 2025Q2

REPORT INFORMATION
  Report Type: Spontaneous
  Country: US (occurrence: None)
  Receive Date: 20250619
  Receipt Date: 20250619
  Transmission Date: 20250716
  Serious: No
  Sender: US WORLDMEDS
  Company Number: US-USWM, LLC-UWM202407-000059

PATIENT
  Sex: Male

DRUGS (4)
  1. LUCEMYRA [Suspect]
     Active Substance: LOFEXIDINE
     Indication: Product used for unknown indication
     Dates: start: 202406
  2. ZUBSOLV [Concomitant]
     Active Substance: BUPRENORPHINE HYDROCHLORIDE\NALOXONE HYDROCHLORIDE
     Dates: start: 202406
  3. LAMICTAL [Concomitant]
     Active Substance: LAMOTRIGINE
  4. ROSUVASTATIN [Concomitant]
     Active Substance: ROSUVASTATIN

REACTIONS (1)
  - Illness [Unknown]

NARRATIVE: CASE EVENT DATE: 20240601
